FAERS Safety Report 17596827 (Version 1)
Quarter: 2020Q1

REPORT INFORMATION
  Report Type: Spontaneous
  Country: US (occurrence: US)
  Receive Date: 20200330
  Receipt Date: 20200330
  Transmission Date: 20200409
  Serious: No
  Sender: FDA-Public Use
  Company Number: US-FDC LIMITED-2082094

PATIENT
  Age: 69 Year
  Sex: Male
  Weight: 90.91 kg

DRUGS (13)
  1. DICLOFENAC SODIUM. [Concomitant]
     Active Substance: DICLOFENAC SODIUM
     Route: 061
  2. LIDOCAINE 5% [Concomitant]
     Active Substance: LIDOCAINE
     Route: 065
  3. VELPHORO [Concomitant]
     Active Substance: FERRIC OXYHYDROXIDE
     Route: 065
  4. ROSUVASTATIN. [Concomitant]
     Active Substance: ROSUVASTATIN
     Route: 065
  5. FOMEX [Concomitant]
     Route: 065
  6. LEVOTHYROXINE. [Concomitant]
     Active Substance: LEVOTHYROXINE
     Route: 065
  7. CARVEDILOL. [Concomitant]
     Active Substance: CARVEDILOL
     Route: 065
  8. LANTUS SOLOSTAR [Concomitant]
     Active Substance: INSULIN GLARGINE
     Route: 065
  9. CIPROFLOXACIN. [Suspect]
     Active Substance: CIPROFLOXACIN
     Indication: EYE INFECTION
     Route: 047
     Dates: start: 20200227, end: 20200227
  10. RENALTAB ZN+D (VITAMIN D) [Concomitant]
     Route: 065
  11. HYDRALAZINE [Concomitant]
     Active Substance: HYDRALAZINE HYDROCHLORIDE
     Route: 065
  12. LACTULOSE. [Concomitant]
     Active Substance: LACTULOSE
     Route: 065
  13. ELIQUIS [Concomitant]
     Active Substance: APIXABAN
     Route: 065

REACTIONS (6)
  - Drug ineffective [Unknown]
  - Nausea [Not Recovered/Not Resolved]
  - Condition aggravated [Not Recovered/Not Resolved]
  - Ocular hyperaemia [Not Recovered/Not Resolved]
  - Vision blurred [Not Recovered/Not Resolved]
  - Vomiting [Not Recovered/Not Resolved]

NARRATIVE: CASE EVENT DATE: 20200227
